FAERS Safety Report 9240481 (Version 1)
Quarter: 2013Q1

REPORT INFORMATION
  Report Type: Spontaneous
  Country: US (occurrence: None)
  Receive Date: 20121120
  Receipt Date: 20121120
  Transmission Date: 20140127
  Serious: No
  Sender: FDA-Public Use
  Company Number: 1000039019

PATIENT
  Sex: Male

DRUGS (1)
  1. VIIBRYD (VILADOZONE HYDROCHLORIDE) [Suspect]
     Dosage: 40 MG (40 MG, 1 IN 1 D), ORAL?STOPPED
     Route: 048

REACTIONS (1)
  - Sexual dysfunction [None]
